FAERS Safety Report 16968762 (Version 2)
Quarter: 2019Q4

REPORT INFORMATION
  Report Type: Report from Study
  Country: CO (occurrence: CO)
  Receive Date: 20191029
  Receipt Date: 20191114
  Transmission Date: 20200122
  Serious: Yes (Hospitalization, Other)
  Sender: FDA-Public Use
  Company Number: CO-ASTELLAS-2018US041326

PATIENT
  Age: 74 Year
  Sex: Male
  Weight: 65 kg

DRUGS (10)
  1. TACROLIMUS. [Suspect]
     Active Substance: TACROLIMUS
     Route: 048
  2. TACROLIMUS. [Suspect]
     Active Substance: TACROLIMUS
     Dosage: 2 MG, EVERY 12 HOURS (2 CAPSULES OF 1 MG)
     Route: 048
     Dates: start: 201910
  3. TACROLIMUS. [Suspect]
     Active Substance: TACROLIMUS
     Indication: RENAL TRANSPLANT
     Dosage: 1 MG, EVERY 12 HOURS (1 CAPSULE OF 1 MG)
     Route: 048
     Dates: start: 20170824
  4. AMIODARONE [Suspect]
     Active Substance: AMIODARONE
     Indication: CARDIAC DISORDER
     Route: 048
     Dates: start: 20190810
  5. OMEPRAZOLE. [Concomitant]
     Active Substance: OMEPRAZOLE
     Indication: GASTRIC DISORDER
     Route: 048
  6. INSULIN LISPRO [Concomitant]
     Active Substance: INSULIN LISPRO
     Indication: DIABETES MELLITUS
     Dosage: 5 IU, UNKNOWN FREQ. (BEFORE EACH MEAL)
     Route: 058
  7. EVEROLIMUS. [Suspect]
     Active Substance: EVEROLIMUS
     Indication: PRODUCT USED FOR UNKNOWN INDICATION
     Dosage: UNK UNK, UNKNOWN FREQ.
     Route: 065
  8. PREDNISOLONE. [Concomitant]
     Active Substance: PREDNISOLONE
     Indication: RENAL TRANSPLANT
     Route: 048
     Dates: start: 20190520
  9. LANTUS [Concomitant]
     Active Substance: INSULIN GLARGINE
     Indication: DIABETES MELLITUS
     Route: 058
  10. FUROSEMIDE. [Concomitant]
     Active Substance: FUROSEMIDE
     Indication: ILL-DEFINED DISORDER
     Route: 048

REACTIONS (17)
  - Extremity necrosis [Not Recovered/Not Resolved]
  - Immunosuppressant drug level decreased [Recovering/Resolving]
  - Inappropriate schedule of product administration [Unknown]
  - Pain in extremity [Recovered/Resolved]
  - Sepsis [Recovering/Resolving]
  - Localised infection [Recovering/Resolving]
  - Hypotension [Recovered/Resolved]
  - Blood creatinine increased [Recovered/Resolved]
  - Renal disorder [Recovered/Resolved]
  - Cardio-respiratory arrest [Recovered/Resolved]
  - Gait disturbance [Recovered/Resolved]
  - Hypoglycaemia [Recovered/Resolved]
  - Limb injury [Not Recovered/Not Resolved]
  - Impaired healing [Recovered/Resolved]
  - Wound [Not Recovered/Not Resolved]
  - Thyroid hormones increased [Recovering/Resolving]
  - Diarrhoea [Recovering/Resolving]

NARRATIVE: CASE EVENT DATE: 2019
